FAERS Safety Report 4493356-5 (Version None)
Quarter: 2004Q4

REPORT INFORMATION
  Report Type: 
  Country: None (occurrence: None)
  Receive Date: 20041102
  Receipt Date: 20041017
  Transmission Date: 20050328
  Serious: Yes (Disabling)
  Sender: FDA-Public Use
  Company Number: US014112

PATIENT
  Sex: Male

DRUGS (1)
  1. GABITRIL [Suspect]
     Dosage: 16 MG QHS ORAL
     Route: 048
     Dates: start: 20040801

REACTIONS (9)
  - ABASIA [None]
  - AMNESIA [None]
  - ANXIETY [None]
  - APHASIA [None]
  - FEAR [None]
  - FEELING COLD [None]
  - IMPAIRED WORK ABILITY [None]
  - INSOMNIA [None]
  - PANIC ATTACK [None]
